FAERS Safety Report 13526308 (Version 3)
Quarter: 2017Q2

REPORT INFORMATION
  Report Type: Spontaneous
  Country: US (occurrence: US)
  Receive Date: 20170509
  Receipt Date: 20170612
  Transmission Date: 20170830
  Serious: No
  Sender: FDA-Public Use
  Company Number: US-ASTRAZENECA-2017SE48214

PATIENT
  Age: 30100 Day
  Sex: Female

DRUGS (3)
  1. PROVENTIL [Concomitant]
     Active Substance: ALBUTEROL
  2. TUDORZA PRESSAIR [Suspect]
     Active Substance: ACLIDINIUM BROMIDE
     Indication: CHRONIC OBSTRUCTIVE PULMONARY DISEASE
     Dosage: 400 MCG ONE INHALATION TWICE A DAY
     Route: 055
     Dates: start: 20170502
  3. OXYGEN. [Concomitant]
     Active Substance: OXYGEN
     Dosage: CONTINUOUSLY 2L
     Route: 045

REACTIONS (7)
  - Hypopnoea [Not Recovered/Not Resolved]
  - Intentional product misuse [Not Recovered/Not Resolved]
  - Nasal septum deviation [Unknown]
  - Malaise [Not Recovered/Not Resolved]
  - Drug dose omission [Not Recovered/Not Resolved]
  - Device malfunction [Unknown]
  - Cardiac disorder [Unknown]

NARRATIVE: CASE EVENT DATE: 20170502
